FAERS Safety Report 4822754-2 (Version None)
Quarter: 2005Q4

REPORT INFORMATION
  Report Type: 
  Country: None (occurrence: None)
  Receive Date: 20051104
  Receipt Date: 20051025
  Transmission Date: 20060501
  Serious: Yes (Other)
  Sender: FDA-Public Use
  Company Number: 2003005054

PATIENT
  Sex: Female

DRUGS (5)
  1. TIKOSYN [Suspect]
     Indication: ATRIAL FIBRILLATION
     Dosage: ORAL
     Route: 048
     Dates: start: 20001205
  2. CIPROFLOXACIN [Suspect]
     Indication: ILL-DEFINED DISORDER
     Dates: start: 20001201
  3. PREMARIN [Concomitant]
  4. LIPITOR [Concomitant]
  5. PREVAICD (LANSOPRAOZLE) [Concomitant]

REACTIONS (3)
  - ATRIAL FIBRILLATION [None]
  - DRUG INTERACTION [None]
  - RASH [None]
